FAERS Safety Report 6388704-5 (Version None)
Quarter: 2009Q4

REPORT INFORMATION
  Report Type: 
  Country: None (occurrence: None)
  Receive Date: 20091002
  Receipt Date: 20091002
  Transmission Date: 20100525
  Serious: Yes (Hospitalization)
  Sender: FDA-Public Use
  Company Number: None

PATIENT
  Sex: Male
  Weight: 78.6 kg

DRUGS (1)
  1. CETUXIMAB 250MG/M2 [Suspect]
     Dosage: 525MG IV
     Route: 042
     Dates: start: 20090914

REACTIONS (2)
  - DERMATITIS [None]
  - WEIGHT GAIN POOR [None]
